FAERS Safety Report 4817372-6 (Version None)
Quarter: 2005Q4

REPORT INFORMATION
  Report Type: 
  Country: None (occurrence: None)
  Receive Date: 20051031
  Receipt Date: 20051019
  Transmission Date: 20060501
  Serious: Yes (Death)
  Sender: FDA-Public Use
  Company Number: 2005AP000854

PATIENT
  Age: 77 Year
  Sex: Male

DRUGS (2)
  1. METFORMIN HCL [Suspect]
     Indication: INTENTIONAL OVERDOSE
     Dosage: 50 TAB; 1X; PO
     Route: 048
     Dates: start: 20040101, end: 20040101
  2. ACETAMINOPHEN W/ PROPOXYPHENE HCL [Suspect]
     Indication: INTENTIONAL OVERDOSE
     Dosage: 1X; PO
     Route: 048
     Dates: start: 20040101, end: 20040101

REACTIONS (9)
  - ACIDOSIS [None]
  - BLOOD BICARBONATE DECREASED [None]
  - BLOOD LACTIC ACID INCREASED [None]
  - BRADYCARDIA [None]
  - COMA [None]
  - COMPLETED SUICIDE [None]
  - HAEMODIALYSIS [None]
  - INTENTIONAL OVERDOSE [None]
  - SOMNOLENCE [None]
